FAERS Safety Report 24400324 (Version 3)
Quarter: 2024Q4

REPORT INFORMATION
  Report Type: Report from Study
  Country: MX (occurrence: MX)
  Receive Date: 20241005
  Receipt Date: 20241021
  Transmission Date: 20250115
  Serious: Yes (Other)
  Sender: JOHNSON AND JOHNSON
  Company Number: MX-JNJFOC-20240967469

PATIENT
  Age: 38 Year
  Sex: Male

DRUGS (7)
  1. PALIPERIDONE PALMITATE [Suspect]
     Active Substance: PALIPERIDONE PALMITATE
     Indication: Schizophrenia
     Route: 030
     Dates: start: 20240301
  2. PALIPERIDONE PALMITATE [Suspect]
     Active Substance: PALIPERIDONE PALMITATE
  3. PALIPERIDONE PALMITATE [Suspect]
     Active Substance: PALIPERIDONE PALMITATE
  4. LORAZEPAM [Concomitant]
     Active Substance: LORAZEPAM
     Route: 048
  5. CLONAZEPAM [Concomitant]
     Active Substance: CLONAZEPAM
  6. FLUVOXAMINE [Concomitant]
     Active Substance: FLUVOXAMINE
  7. PREGABALIN [Concomitant]
     Active Substance: PREGABALIN

REACTIONS (9)
  - Ophthalmoplegia [Unknown]
  - Insomnia [Unknown]
  - Gait disturbance [Unknown]
  - Catatonia [Unknown]
  - Hyperacusis [Unknown]
  - Feeding disorder [Unknown]
  - Delusion [Recovering/Resolving]
  - Aggression [Recovering/Resolving]
  - Off label use [Unknown]

NARRATIVE: CASE EVENT DATE: 20240901
